FAERS Safety Report 9880311 (Version 2)
Quarter: 2014Q1

REPORT INFORMATION
  Report Type: Spontaneous
  Country: IT (occurrence: IT)
  Receive Date: 20140207
  Receipt Date: 20140219
  Transmission Date: 20141002
  Serious: Yes (Hospitalization)
  Sender: FDA-Public Use
  Company Number: IT-RANBAXY-2014RR-77816

PATIENT
  Age: 8 Month
  Sex: Female

DRUGS (2)
  1. PARACETAMOL [Suspect]
     Indication: PYREXIA
     Dosage: UNK
     Route: 048
     Dates: start: 20131214
  2. PARACETAMOL [Suspect]
     Dosage: 35 DROPS DAILY
     Route: 048
     Dates: start: 20131215

REACTIONS (1)
  - Urticaria [Unknown]
